FAERS Safety Report 7789332-7 (Version None)
Quarter: 2011Q3

REPORT INFORMATION
  Report Type: 
  Country: None (occurrence: None)
  Receive Date: 20110930
  Receipt Date: 20110928
  Transmission Date: 20111222
  Serious: Yes (Hospitalization)
  Sender: FDA-Public Use
  Company Number: US-GLAXOSMITHKLINE-A0946459A

PATIENT
  Sex: Male

DRUGS (6)
  1. LIPITOR [Concomitant]
  2. AVANDIA [Suspect]
     Indication: DIABETES MELLITUS
     Dosage: 8MG PER DAY
     Route: 048
     Dates: end: 20010101
  3. GLUCOPHAGE [Concomitant]
  4. NORTRIPTYLINE HCL [Concomitant]
  5. INSULIN [Concomitant]
  6. ALTACE [Concomitant]

REACTIONS (5)
  - CORONARY ARTERY DISEASE [None]
  - PLEURAL EFFUSION [None]
  - PULMONARY OEDEMA [None]
  - CORONARY ARTERY BYPASS [None]
  - ATRIAL FIBRILLATION [None]
